FAERS Safety Report 7195916-X (Version None)
Quarter: 2010Q4

REPORT INFORMATION
  Report Type: 
  Country: None (occurrence: None)
  Receive Date: 20101223
  Receipt Date: 20101011
  Transmission Date: 20110411
  Serious: No
  Sender: FDA-Public Use
  Company Number: US-AMGEN-KDL444518

PATIENT

DRUGS (2)
  1. ENBREL [Suspect]
     Indication: PSORIATIC ARTHROPATHY
     Dosage: 50 MG, QWK
  2. UNSPECIFIED MEDICATION [Concomitant]
     Dosage: UNK UNK, UNK

REACTIONS (3)
  - BLOOD TESTOSTERONE INCREASED [None]
  - HYPERHIDROSIS [None]
  - MENOPAUSE [None]
